FAERS Safety Report 7654968-0 (Version None)
Quarter: 2011Q3

REPORT INFORMATION
  Report Type: 
  Country: None (occurrence: None)
  Receive Date: 20110728
  Receipt Date: 20110712
  Transmission Date: 20111222
  Serious: Yes (Hospitalization)
  Sender: FDA-Public Use
  Company Number: 2011MA008717

PATIENT
  Age: 50 Year
  Sex: Female

DRUGS (3)
  1. PHENOBARBITAL TAB [Concomitant]
  2. CARBAMAZEPINE [Suspect]
     Indication: EPILEPSY
  3. PHENYTOIN [Concomitant]

REACTIONS (11)
  - STAPHYLOCOCCUS TEST POSITIVE [None]
  - TACHYCARDIA [None]
  - BLOOD CULTURE POSITIVE [None]
  - URINE KETONE BODY PRESENT [None]
  - BLOOD GLUCOSE INCREASED [None]
  - TACHYPNOEA [None]
  - HYPOTENSION [None]
  - PYROGLUTAMATE INCREASED [None]
  - METABOLIC ACIDOSIS [None]
  - SEPSIS [None]
  - ARTHRALGIA [None]
